FAERS Safety Report 5345130-5 (Version None)
Quarter: 2007Q2

REPORT INFORMATION
  Report Type: 
  Country: None (occurrence: None)
  Receive Date: 20070416
  Receipt Date: 20061012
  Transmission Date: 20071010
  Serious: Yes (Other)
  Sender: FDA-Public Use
  Company Number: 06-001190

PATIENT
  Sex: Male

DRUGS (3)
  1. DURICEF [Suspect]
  2. KENALOG [Suspect]
  3. ROCEPHIN [Suspect]

REACTIONS (1)
  - ANAPHYLACTIC SHOCK [None]
